FAERS Safety Report 10298276 (Version 1)
Quarter: 2014Q3

REPORT INFORMATION
  Report Type: Spontaneous
  Country: CA (occurrence: CA)
  Receive Date: 20140711
  Receipt Date: 20140711
  Transmission Date: 20150326
  Serious: Yes (Hospitalization)
  Sender: FDA-Public Use
  Company Number: CA-PFIZER INC-2014189553

PATIENT
  Age: 24 Year
  Sex: Female

DRUGS (1)
  1. RELPAX [Suspect]
     Active Substance: ELETRIPTAN HYDROBROMIDE
     Dosage: 40 MG, SINGLE
     Route: 048

REACTIONS (5)
  - Chest discomfort [Unknown]
  - Nausea [Unknown]
  - Paraesthesia [Unknown]
  - Swollen tongue [Unknown]
  - Oral discomfort [Unknown]
